FAERS Safety Report 5462683-7 (Version None)
Quarter: 2007Q3

REPORT INFORMATION
  Report Type: 
  Country: None (occurrence: None)
  Receive Date: 20070920
  Receipt Date: 20070911
  Transmission Date: 20080115
  Serious: Yes (Hospitalization, Disabling)
  Sender: FDA-Public Use
  Company Number: CA-NOVOPROD-266567

PATIENT
  Age: 48 Year
  Sex: Female
  Weight: 94 kg

DRUGS (11)
  1. NOVOLOG MIX 70/30 [Suspect]
     Indication: INSULIN-REQUIRING TYPE II DIABETES MELLITUS
     Dosage: 20 IU, QD
     Route: 058
     Dates: start: 20070515
  2. ACCUPRIL [Concomitant]
     Dosage: 20 MG, QD
     Route: 048
     Dates: start: 20070417
  3. DETROL                             /01350201/ [Concomitant]
     Dosage: 4 MG, QD
     Route: 048
     Dates: start: 20070418
  4. ELTROXIN [Concomitant]
     Dosage: 50 MG, QD
     Route: 048
     Dates: start: 20060818, end: 20070316
  5. HYDROCHLOROTHIAZIDE [Concomitant]
     Dosage: 25 MG, QD
     Route: 048
     Dates: start: 20070317, end: 20070717
  6. METFORMIN HYDROCHLORIDE [Concomitant]
     Dosage: 500 MG, QD
     Route: 048
     Dates: start: 20070402
  7. METOPROLOL TARTRATE [Concomitant]
     Dosage: 50 MG, QD
     Route: 048
     Dates: start: 20070504
  8. MOBIC [Concomitant]
     Dosage: 7.5 MG, QD
     Route: 048
     Dates: start: 20051116, end: 20060316
  9. PAXIL [Concomitant]
     Dosage: 20 MG, QD
     Route: 048
     Dates: start: 20070319, end: 20070717
  10. PREVACID [Concomitant]
     Dosage: 30 MG, QD
     Route: 048
     Dates: start: 20070301, end: 20070331
  11. TRAZODONE HYDROCHLORIDE [Concomitant]
     Dosage: 50 MG, QD
     Route: 048
     Dates: start: 20070319, end: 20070717

REACTIONS (3)
  - FALL [None]
  - FEMUR FRACTURE [None]
  - PATELLA FRACTURE [None]
